FAERS Safety Report 4643007-1 (Version None)
Quarter: 2005Q2

REPORT INFORMATION
  Report Type: 
  Country: None (occurrence: None)
  Receive Date: 20050422
  Receipt Date: 20050412
  Transmission Date: 20051028
  Serious: Yes (Hospitalization, Other)
  Sender: FDA-Public Use
  Company Number: TPA2005A00417

PATIENT
  Age: 58 Year
  Sex: Male

DRUGS (3)
  1. ACTOS [Suspect]
     Indication: DIABETES MELLITUS
     Dosage: 15 MG, 1 IN 1 D, PER ORAL
     Route: 048
  2. GLUCOTROL XL [Concomitant]
  3. LOPID [Concomitant]

REACTIONS (7)
  - ASTHENIA [None]
  - BONE MARROW DEPRESSION [None]
  - FAECES DISCOLOURED [None]
  - HEART RATE INCREASED [None]
  - MONOCYTOPENIA [None]
  - TREMOR [None]
  - WHITE BLOOD CELL DISORDER [None]
